FAERS Safety Report 6965596-4 (Version None)
Quarter: 2010Q3

REPORT INFORMATION
  Report Type: 
  Country: None (occurrence: None)
  Receive Date: 20100901
  Receipt Date: 20100820
  Transmission Date: 20110219
  Serious: Yes (Other)
  Sender: FDA-Public Use
  Company Number: A-US2010-37868

PATIENT
  Age: 30 Year
  Sex: Female

DRUGS (8)
  1. TRACLEER [Suspect]
     Indication: PULMONARY ARTERIAL HYPERTENSION
     Dosage: 62.5 MG, BID, ORAL
     Route: 048
     Dates: start: 20100501, end: 20100702
  2. COUMADIN [Concomitant]
  3. PLAQUENIL [Concomitant]
  4. LOPRESSOR [Concomitant]
  5. LORTAB [Concomitant]
  6. FENTANYL CITRATE [Concomitant]
  7. ZOCOR [Concomitant]
  8. PLAVIX [Concomitant]

REACTIONS (6)
  - CHEST PAIN [None]
  - DYSPNOEA [None]
  - ENDOCARDITIS [None]
  - FATIGUE [None]
  - NIGHT SWEATS [None]
  - VOMITING [None]
